FAERS Safety Report 20937613 (Version 1)
Quarter: 2022Q2

REPORT INFORMATION
  Report Type: Spontaneous
  Country: US (occurrence: None)
  Receive Date: 20220608
  Receipt Date: 20220608
  Transmission Date: 20220721
  Serious: No
  Sender: FDA-Public Use
  Company Number: None

PATIENT
  Sex: Male

DRUGS (1)
  1. LENALIDOMIDE [Suspect]
     Active Substance: LENALIDOMIDE
     Indication: Plasma cell myeloma
     Dosage: 10MG DAILY BY MOUTH?
     Route: 048
     Dates: start: 20220512

REACTIONS (6)
  - Headache [None]
  - Dizziness [None]
  - Fatigue [None]
  - Platelet count decreased [None]
  - Haematocrit decreased [None]
  - Haemoglobin decreased [None]
